FAERS Safety Report 16746971 (Version 2)
Quarter: 2019Q3

REPORT INFORMATION
  Report Type: Report from Study
  Country: US (occurrence: US)
  Receive Date: 20190827
  Receipt Date: 20190903
  Transmission Date: 20191005
  Serious: Yes (Hospitalization, Other)
  Sender: FDA-Public Use
  Company Number: US-SA-2019SA235618

PATIENT
  Age: 52 Year
  Sex: Female

DRUGS (1)
  1. SARILUMAB [Suspect]
     Active Substance: SARILUMAB
     Indication: RHEUMATOID ARTHRITIS
     Dosage: 200 MG, QOW
     Route: 058
     Dates: start: 20190808

REACTIONS (5)
  - Asthma [Unknown]
  - Pneumonia [Unknown]
  - Dyspnoea [Unknown]
  - Pain [Unknown]
  - Product dose omission [Unknown]

NARRATIVE: CASE EVENT DATE: 20190820
